FAERS Safety Report 7950752-9 (Version None)
Quarter: 2011Q4

REPORT INFORMATION
  Report Type: 
  Country: None (occurrence: None)
  Receive Date: 20111201
  Receipt Date: 20111118
  Transmission Date: 20120403
  Serious: Yes (Other)
  Sender: FDA-Public Use
  Company Number: CA-BAYER-2011-111571

PATIENT
  Age: 22 Year
  Sex: Female
  Weight: 55 kg

DRUGS (6)
  1. VITAMIN D [Concomitant]
  2. CALCIUM CARBONATE [Concomitant]
  3. BISMUTH SUBSALICYLATE [Concomitant]
  4. IMODIUM [Concomitant]
  5. YASMIN [Suspect]
     Indication: PRODUCT USED FOR UNKNOWN INDICATION
     Dosage: 1 DF, QD
     Route: 048
  6. ONE A DAY WEIGHTSMART [Concomitant]

REACTIONS (6)
  - POLYURIA [None]
  - PANIC ATTACK [None]
  - ANXIETY [None]
  - FUNGAL INFECTION [None]
  - GASTROINTESTINAL DISORDER [None]
  - MICTURITION URGENCY [None]
